FAERS Safety Report 15150197 (Version 1)
Quarter: 2018Q3

REPORT INFORMATION
  Report Type: Spontaneous
  Country: SE (occurrence: SE)
  Receive Date: 20180716
  Receipt Date: 20180716
  Transmission Date: 20181010
  Serious: Yes (Death)
  Sender: FDA-Public Use
  Company Number: SE-US WORLDMEDS, LLC-STA_00016855

PATIENT
  Age: 61 Year
  Sex: Male

DRUGS (6)
  1. STALEVO 100 [Concomitant]
     Indication: PARKINSON^S DISEASE
     Dosage: 1X5
  2. STALEVO [Concomitant]
     Active Substance: CARBIDOPA\ENTACAPONE\LEVODOPA
     Indication: PARKINSON^S DISEASE
     Dosage: 1X1
  3. APOMORPHINE HYDROCHLORIDE [Suspect]
     Active Substance: APOMORPHINE HYDROCHLORIDE
     Indication: PARKINSON^S DISEASE
     Route: 058
     Dates: start: 20090122
  4. MOTILIUM 10MG [Concomitant]
     Indication: NAUSEA
     Dosage: 1X3
  5. AZILECT [Concomitant]
     Active Substance: RASAGILINE MESYLATE
     Indication: PARKINSON^S DISEASE
     Dosage: 1X1
  6. SIFROL 0.18MG [Concomitant]
     Indication: PARKINSON^S DISEASE
     Dosage: 1X6

REACTIONS (1)
  - Completed suicide [Fatal]

NARRATIVE: CASE EVENT DATE: 20100227
